FAERS Safety Report 18507054 (Version 2)
Quarter: 2021Q2

REPORT INFORMATION
  Report Type: Report from Study
  Country: CA (occurrence: CA)
  Receive Date: 20201116
  Receipt Date: 20210531
  Transmission Date: 20210717
  Serious: Yes (Other)
  Sender: FDA-Public Use
  Company Number: CA-UCBSA-2020044887

PATIENT
  Sex: Female

DRUGS (2)
  1. CERTOLIZUMAB PEGOL AUTOCLICKS [Suspect]
     Active Substance: CERTOLIZUMAB PEGOL
     Indication: RHEUMATOID ARTHRITIS
     Dosage: 400 MILLIGRAM, EV 2 WEEKS(QOW)
     Route: 058
     Dates: start: 20200908, end: 2020
  2. CERTOLIZUMAB PEGOL AUTOCLICKS [Suspect]
     Active Substance: CERTOLIZUMAB PEGOL
     Dosage: 400 MILLIGRAM, EV 4 WEEKS
     Route: 058
     Dates: start: 202010

REACTIONS (7)
  - Musculoskeletal stiffness [Unknown]
  - COVID-19 immunisation [Unknown]
  - Pain [Unknown]
  - Nausea [Unknown]
  - Rheumatoid arthritis [Not Recovered/Not Resolved]
  - Vaccination complication [Unknown]
  - Fatigue [Unknown]

NARRATIVE: CASE EVENT DATE: 2021
